FAERS Safety Report 10372953 (Version 1)
Quarter: 2014Q3

REPORT INFORMATION
  Report Type: Spontaneous
  Country: US (occurrence: US)
  Receive Date: 20140808
  Receipt Date: 20140808
  Transmission Date: 20150326
  Serious: No
  Sender: FDA-Public Use
  Company Number: US-BRISTOL-MYERS SQUIBB COMPANY-19841790

PATIENT
  Age: 54 Year
  Sex: Male
  Weight: 68.03 kg

DRUGS (1)
  1. SPRYCEL [Suspect]
     Active Substance: DASATINIB
     Indication: CHRONIC MYELOID LEUKAEMIA

REACTIONS (3)
  - Headache [Recovered/Resolved]
  - Mood altered [Recovering/Resolving]
  - Personality change [Recovering/Resolving]
